FAERS Safety Report 5380760-6 (Version None)
Quarter: 2007Q3

REPORT INFORMATION
  Report Type: 
  Country: None (occurrence: None)
  Receive Date: 20070706
  Receipt Date: 20070705
  Transmission Date: 20080115
  Serious: Yes (Other)
  Sender: FDA-Public Use
  Company Number: A0661688A

PATIENT
  Sex: Male

DRUGS (1)
  1. AQUAFRESH ALL WITH TARTAR CONTROL TOOTHPASTE TUBE [Suspect]
     Indication: DENTAL CLEANING

REACTIONS (3)
  - APHASIA [None]
  - GINGIVAL SWELLING [None]
  - LIP SWELLING [None]
